FAERS Safety Report 5836915-7 (Version None)
Quarter: 2008Q3

REPORT INFORMATION
  Report Type: 
  Country: None (occurrence: None)
  Receive Date: 20080805
  Receipt Date: 20080721
  Transmission Date: 20090109
  Serious: Yes (Hospitalization, Other)
  Sender: FDA-Public Use
  Company Number: 2008S1000472

PATIENT
  Age: 60 Year
  Sex: Female

DRUGS (8)
  1. DARVOCET-N 100 [Suspect]
     Dosage: PRN
  2. ENBREL [Suspect]
     Indication: RHEUMATOID ARTHRITIS
     Dosage: 50 MG; QW; SC
     Route: 058
     Dates: start: 20000310
  3. OXYCONTIN [Suspect]
     Dates: start: 20051201
  4. PREDNISONE TAB [Concomitant]
  5. GABAPENTIN [Concomitant]
  6. ESOMERPRAXOLE MAGNESIUM [Concomitant]
  7. FEXOFENDAINE HYDROCHLORIDE [Concomitant]
  8. TRILISATE [Concomitant]

REACTIONS (12)
  - ADRENAL INSUFFICIENCY [None]
  - BILE DUCT STONE [None]
  - BILIARY DILATATION [None]
  - DUODENITIS [None]
  - DYSPHASIA [None]
  - DYSPNOEA [None]
  - HYPOPHAGIA [None]
  - INFLUENZA LIKE ILLNESS [None]
  - JOINT DISLOCATION [None]
  - ODYNOPHAGIA [None]
  - PANCREATIC NEOPLASM [None]
  - PANCREATITIS [None]
